FAERS Safety Report 18705835 (Version 1)
Quarter: 2021Q1

REPORT INFORMATION
  Report Type: Spontaneous
  Country: CA (occurrence: CA)
  Receive Date: 20210106
  Receipt Date: 20210106
  Transmission Date: 20210419
  Serious: Yes (Other)
  Sender: FDA-Public Use
  Company Number: CA-ACCORD-213329

PATIENT
  Age: 64 Year
  Sex: Male

DRUGS (11)
  1. PERINDOPRIL [Concomitant]
     Active Substance: PERINDOPRIL
  2. SULFASALAZINE. [Concomitant]
     Active Substance: SULFASALAZINE
  3. ROSUVASTATIN. [Concomitant]
     Active Substance: ROSUVASTATIN
  4. TAMSULOSIN/TAMSULOSIN HYDROCHLORIDE [Concomitant]
     Active Substance: TAMSULOSIN HYDROCHLORIDE
  5. METHOTREXATE. [Suspect]
     Active Substance: METHOTREXATE
     Indication: PRODUCT USED FOR UNKNOWN INDICATION
  6. NAPROXEN. [Concomitant]
     Active Substance: NAPROXEN
  7. GABAPENTIN. [Concomitant]
     Active Substance: GABAPENTIN
  8. FOLIC ACID. [Concomitant]
     Active Substance: FOLIC ACID
  9. METOPROLOL. [Concomitant]
     Active Substance: METOPROLOL
  10. RABEPRAZOLE/RABEPRAZOLE SODIUM [Concomitant]
     Active Substance: RABEPRAZOLE SODIUM
  11. HYDROXYCHLOROQUINE [Concomitant]
     Active Substance: HYDROXYCHLOROQUINE

REACTIONS (4)
  - Interstitial lung disease [Unknown]
  - Neoplasm malignant [Unknown]
  - Contraindicated product administered [Unknown]
  - Lung disorder [Unknown]
